FAERS Safety Report 5505223-6 (Version None)
Quarter: 2007Q4

REPORT INFORMATION
  Report Type: 
  Country: None (occurrence: None)
  Receive Date: 20071031
  Receipt Date: 20071018
  Transmission Date: 20080405
  Serious: Yes (Other)
  Sender: FDA-Public Use
  Company Number: 2007333815

PATIENT
  Age: 3 Year
  Sex: Female

DRUGS (1)
  1. DEXTROMETHORPHAN/PSEUDOEPHEDRINE [Suspect]

REACTIONS (1)
  - HALLUCINATION, VISUAL [None]
